FAERS Safety Report 14523763 (Version 1)
Quarter: 2018Q1

REPORT INFORMATION
  Report Type: Spontaneous
  Country: US (occurrence: US)
  Receive Date: 20180213
  Receipt Date: 20180213
  Transmission Date: 20180509
  Serious: Yes (Other)
  Sender: FDA-Public Use
  Company Number: US-ASTRAZENECA-2005UW06012

PATIENT
  Age: 63 Year
  Sex: Male
  Weight: 83.9 kg

DRUGS (9)
  1. NIACIN. [Suspect]
     Active Substance: NIACIN
     Dosage: PROGRESSED FROM 500 TO 1500 MG
  2. BABY ASA [Concomitant]
     Active Substance: ASPIRIN
  3. NIACIN. [Suspect]
     Active Substance: NIACIN
  4. MULTIVITAMINS [Concomitant]
     Active Substance: VITAMINS
  5. ROSUVASTATIN. [Suspect]
     Active Substance: ROSUVASTATIN
     Indication: BLOOD CHOLESTEROL INCREASED
     Route: 048
  6. ROSUVASTATIN. [Suspect]
     Active Substance: ROSUVASTATIN
     Indication: BLOOD CHOLESTEROL INCREASED
     Route: 048
  7. FLAXSEED [Concomitant]
     Active Substance: FLAX SEED
  8. NIACIN. [Suspect]
     Active Substance: NIACIN
  9. LUTEIN [Concomitant]
     Active Substance: LUTEIN

REACTIONS (2)
  - Internal haemorrhage [Unknown]
  - Drug dispensing error [Unknown]
